FAERS Safety Report 23075502 (Version 1)
Quarter: 2023Q4

REPORT INFORMATION
  Report Type: Spontaneous
  Country: US (occurrence: None)
  Receive Date: 20231017
  Receipt Date: 20231017
  Transmission Date: 20240110
  Serious: Yes (Hospitalization)
  Sender: FDA-Public Use
  Company Number: None

PATIENT
  Age: 80 Year
  Sex: Female
  Weight: 74 kg

DRUGS (12)
  1. INLYTA [Suspect]
     Active Substance: AXITINIB
     Indication: Renal cell carcinoma
     Dosage: FREQUENCY : TWICE A DAY;?
     Route: 048
     Dates: start: 20230929, end: 20231008
  2. Colace 250 mg qpm [Concomitant]
  3. Magnesium Cl 64mg  daily [Concomitant]
  4. Tylenol 500 mg q6h prn [Concomitant]
  5. Prilosec 20 mg qam [Concomitant]
  6. ASPIRIN [Concomitant]
     Active Substance: ASPIRIN
     Dates: start: 20130710
  7. B-12 1000 mcg tablet daily [Concomitant]
     Dates: start: 20210909
  8. Coreg 25 mg bid [Concomitant]
     Dates: start: 20221215
  9. Crestor 10mg qpm [Concomitant]
     Dates: start: 20221215
  10. Cholecalciferol 50 mcg cap daily [Concomitant]
     Dates: start: 20230802
  11. Lasix 20 mg daily [Concomitant]
     Dates: start: 20230802
  12. Ativan 0.5 mg tab 1 prior to MRI prn [Concomitant]
     Dates: start: 20230817

REACTIONS (1)
  - Posterior reversible encephalopathy syndrome [None]

NARRATIVE: CASE EVENT DATE: 20231008
